FAERS Safety Report 19749860 (Version 1)
Quarter: 2021Q3

REPORT INFORMATION
  Report Type: Spontaneous
  Country: US (occurrence: US)
  Receive Date: 20210826
  Receipt Date: 20210826
  Transmission Date: 20211014
  Serious: No
  Sender: FDA-Public Use
  Company Number: US-SA-2021SA280370

PATIENT
  Age: 14 Year
  Sex: Female

DRUGS (1)
  1. DUPIXENT [Suspect]
     Active Substance: DUPILUMAB
     Indication: DERMATITIS
     Dosage: 300 MG, Q3W
     Route: 058

REACTIONS (4)
  - Polycystic ovaries [Unknown]
  - Product use in unapproved indication [Unknown]
  - Sleep disorder [Unknown]
  - Product use issue [Unknown]
